FAERS Safety Report 8507134-0 (Version None)
Quarter: 2012Q3

REPORT INFORMATION
  Report Type: 
  Country: None (occurrence: None)
  Receive Date: 20120712
  Receipt Date: 20120705
  Transmission Date: 20120928
  Serious: Yes (Hospitalization, Other)
  Sender: FDA-Public Use
  Company Number: FR-PFIZER INC-2012165120

PATIENT
  Age: 71 Year
  Sex: Female

DRUGS (3)
  1. RAMIPRIL [Suspect]
     Indication: HYPERTENSION
     Dosage: 1 DF, 1X/DAY
     Route: 048
     Dates: start: 20110101, end: 20120301
  2. CARBAMAZEPINE [Interacting]
     Indication: EPILEPSY
     Dosage: 800 MG DAILY
     Route: 048
  3. LAMICTAL [Interacting]
     Indication: EPILEPSY
     Dosage: 200 MG DAILY
     Route: 048

REACTIONS (5)
  - DRUG INTERACTION [None]
  - COMPLEX PARTIAL SEIZURES [None]
  - EPILEPSY [None]
  - DISEASE PROGRESSION [None]
  - COUGH [None]
